FAERS Safety Report 6909025-5 (Version None)
Quarter: 2010Q3

REPORT INFORMATION
  Report Type: 
  Country: None (occurrence: None)
  Receive Date: 20100805
  Receipt Date: 20100727
  Transmission Date: 20110219
  Serious: Yes (Hospitalization)
  Sender: FDA-Public Use
  Company Number: US-MYLANLABS-2010S1012286

PATIENT
  Age: 74 Year
  Sex: Female
  Weight: 52.62 kg

DRUGS (7)
  1. EMSAM [Suspect]
     Indication: ABDOMINAL PAIN
     Dosage: Q24H
     Route: 062
     Dates: start: 20100404, end: 20100101
  2. EMSAM [Suspect]
     Indication: IRRITABLE BOWEL SYNDROME
     Dosage: Q24H
     Route: 062
     Dates: start: 20100404, end: 20100101
  3. EMSAM [Suspect]
     Indication: DEPRESSION
     Dosage: Q24H
     Route: 062
     Dates: start: 20100404, end: 20100101
  4. EMSAM [Suspect]
     Dosage: Q24H
     Route: 062
     Dates: start: 20100101, end: 20100714
  5. EMSAM [Suspect]
     Dosage: Q24H
     Route: 062
     Dates: start: 20100101, end: 20100714
  6. EMSAM [Suspect]
     Dosage: Q24H
     Route: 062
     Dates: start: 20100101, end: 20100714
  7. CLONAZEPAM [Concomitant]

REACTIONS (7)
  - APPLICATION SITE ERYTHEMA [None]
  - APPLICATION SITE PRURITUS [None]
  - APPLICATION SITE RASH [None]
  - APPLICATION SITE SWELLING [None]
  - DRY MOUTH [None]
  - HEADACHE [None]
  - HYPERTENSIVE CRISIS [None]
